FAERS Safety Report 5032059-5 (Version None)
Quarter: 2006Q2

REPORT INFORMATION
  Report Type: 
  Country: None (occurrence: None)
  Receive Date: 20060616
  Receipt Date: 20060607
  Transmission Date: 20061013
  Serious: Yes (Other)
  Sender: FDA-Public Use
  Company Number: 200611898BCC

PATIENT
  Sex: Female
  Weight: 52.1637 kg

DRUGS (7)
  1. ALEVE [Suspect]
     Indication: NASOPHARYNGITIS
     Dosage: 220 MG, ONCE, ORAL
     Route: 048
  2. ACETAMINOPHEN [Concomitant]
  3. PLAVIX [Concomitant]
  4. TOPROL-XL [Concomitant]
  5. LIPITOR [Concomitant]
  6. PREMARIN [Concomitant]
  7. LOTREL [Concomitant]

REACTIONS (2)
  - ANAPHYLACTIC REACTION [None]
  - PHARMACEUTICAL PRODUCT COMPLAINT [None]
